FAERS Safety Report 9618003 (Version 3)
Quarter: 2013Q4

REPORT INFORMATION
  Report Type: Report from Study
  Country: US (occurrence: US)
  Receive Date: 20131011
  Receipt Date: 20131119
  Transmission Date: 20140711
  Serious: Yes (Life-Threatening, Hospitalization)
  Sender: FDA-Public Use
  Company Number: US-ACTELION-A-NJ2013-89535

PATIENT
  Age: 66 Year
  Sex: Female

DRUGS (18)
  1. TRACLEER [Suspect]
     Indication: PULMONARY ARTERIAL HYPERTENSION
     Dosage: 125 MG, BID
     Route: 048
     Dates: start: 20110101
  2. LIPITOR [Concomitant]
  3. NEURONTIN [Concomitant]
  4. PLAVIX [Concomitant]
  5. K-DUR [Concomitant]
  6. FESOFOR [Concomitant]
  7. VICODIN [Concomitant]
  8. METFORMIN [Concomitant]
     Indication: ESSENTIAL HYPERTENSION
  9. TYLENOL [Concomitant]
  10. NOVOLOG [Concomitant]
  11. LANTUS [Concomitant]
  12. PROAIR [Concomitant]
  13. LISINOPRIL [Concomitant]
  14. LOMOTIL [Concomitant]
  15. ASA [Concomitant]
  16. CYMBALTA [Concomitant]
  17. DITROPAN [Concomitant]
  18. LASIX [Concomitant]

REACTIONS (4)
  - Gastric cancer [Not Recovered/Not Resolved]
  - Splenic neoplasm malignancy unspecified [Not Recovered/Not Resolved]
  - Ovarian cancer [Unknown]
  - Hysterectomy [Unknown]
